FAERS Safety Report 9187001 (Version 1)
Quarter: 2013Q1

REPORT INFORMATION
  Report Type: Spontaneous
  Country: AU (occurrence: AU)
  Receive Date: 20130325
  Receipt Date: 20130325
  Transmission Date: 20140127
  Serious: Yes (Death, Hospitalization, Other)
  Sender: FDA-Public Use
  Company Number: PHHY2013AU027114

PATIENT
  Age: 76 Year
  Sex: Male

DRUGS (10)
  1. EXJADE [Suspect]
     Indication: PLASMA CELL MYELOMA
     Dosage: 500 MG, DAILY
     Route: 048
     Dates: start: 20130216
  2. EXJADE [Suspect]
     Dosage: 500 MG TWO TABLETS/DAY
     Route: 048
  3. SIGMAZINE [Concomitant]
     Dosage: UNK UKN, UNK
  4. NEXIUM [Concomitant]
     Dosage: UNK UKN, UNK
  5. ZOLOFT [Concomitant]
     Dosage: UNK UKN, UNK
  6. ZESTRIL [Concomitant]
     Dosage: UNK UKN, UNK
  7. LIPITOR [Concomitant]
     Dosage: UNK UKN, UNK
  8. NORVASC [Concomitant]
     Dosage: UNK UKN, UNK
  9. TEMAZEPAM [Concomitant]
     Dosage: UNK UKN, UNK
  10. WARFARIN [Concomitant]
     Dosage: UNK UKN, UNK

REACTIONS (12)
  - Death [Fatal]
  - Pneumonia [Unknown]
  - Pyrexia [Unknown]
  - Sepsis [Unknown]
  - Tremor [Unknown]
  - Balance disorder [Unknown]
  - Hypotension [Unknown]
  - Vomiting [Unknown]
  - Malaise [Unknown]
  - General physical health deterioration [Unknown]
  - Fall [Unknown]
  - Feeling abnormal [Unknown]
